FAERS Safety Report 8798032 (Version 3)
Quarter: 2015Q2

REPORT INFORMATION
  Report Type: Report from Study
  Country: BR (occurrence: BR)
  Receive Date: 20120920
  Receipt Date: 20150511
  Transmission Date: 20150821
  Serious: Yes (Hospitalization)
  Sender: FDA-Public Use
  Company Number: BR-ELI_LILLY_AND_COMPANY-BR201209002660

PATIENT
  Sex: Female

DRUGS (2)
  1. LISPRO REGLISPRO [Suspect]
     Active Substance: INSULIN LISPRO
     Indication: BLOOD GLUCOSE ABNORMAL
     Dosage: UNK, OTHER
     Route: 058
  2. LANTUS [Concomitant]
     Active Substance: INSULIN GLARGINE
     Dosage: UNK, EACH MORNING
     Route: 065

REACTIONS (4)
  - Nausea [Unknown]
  - Dehydration [Unknown]
  - Exposure during pregnancy [Not Recovered/Not Resolved]
  - Vomiting [Unknown]
